FAERS Safety Report 16170141 (Version 1)
Quarter: 2019Q2

REPORT INFORMATION
  Report Type: Spontaneous
  Country: FR (occurrence: FR)
  Receive Date: 20190408
  Receipt Date: 20190408
  Transmission Date: 20190711
  Serious: Yes (Other)
  Sender: FDA-Public Use
  Company Number: FR-PFIZER INC-2019143723

PATIENT
  Age: 34 Year
  Sex: Male

DRUGS (8)
  1. TRAMADOL HCL [Suspect]
     Active Substance: TRAMADOL HYDROCHLORIDE
     Dosage: UNK
     Route: 065
  2. TERCIAN [Suspect]
     Active Substance: CYAMEMAZINE
     Dosage: UNK
     Route: 065
  3. FORMOTEROL FUMARATE DIHYDRATE [Suspect]
     Active Substance: FORMOTEROL FUMARATE DIHYDRATE
     Dosage: 12 UG, UNK
     Route: 065
  4. ALPRAZOLAM. [Suspect]
     Active Substance: ALPRAZOLAM
     Dosage: UNK
     Route: 065
  5. SERESTA [Suspect]
     Active Substance: OXAZEPAM
     Dosage: UNK
     Route: 065
  6. DAFALGAN CODEINE [Suspect]
     Active Substance: ACETAMINOPHEN\CODEINE PHOSPHATE
     Dosage: 500/30 MG
     Route: 065
  7. VENTOLINE [Suspect]
     Active Substance: ALBUTEROL
     Dosage: 100 UG, UNK
     Route: 065
  8. FLUOXETINE HCL [Suspect]
     Active Substance: FLUOXETINE HYDROCHLORIDE
     Dosage: UNK
     Route: 065

REACTIONS (2)
  - Prescription form tampering [Not Recovered/Not Resolved]
  - Drug abuse [Not Recovered/Not Resolved]
